FAERS Safety Report 6490076-2 (Version None)
Quarter: 2009Q4

REPORT INFORMATION
  Report Type: 
  Country: None (occurrence: None)
  Receive Date: 20091211
  Receipt Date: 20081211
  Transmission Date: 20100525
  Serious: No
  Sender: FDA-Public Use
  Company Number: A0760762A

PATIENT
  Age: 45 Year
  Sex: Female

DRUGS (8)
  1. FLOVENT [Suspect]
     Indication: DRUG USE FOR UNKNOWN INDICATION
     Route: 065
  2. ALBUTEROL [Suspect]
     Indication: DRUG USE FOR UNKNOWN INDICATION
     Route: 065
  3. CICLESONIDE [Concomitant]
  4. AZMACORT [Concomitant]
  5. ZYRTEC [Concomitant]
  6. XANAX [Concomitant]
  7. LEXAPRO [Concomitant]
  8. ALLEGRA [Concomitant]

REACTIONS (2)
  - AGITATION [None]
  - EAR DISCOMFORT [None]
